FAERS Safety Report 17109287 (Version 3)
Quarter: 2019Q4

REPORT INFORMATION
  Report Type: Spontaneous
  Country: JP (occurrence: JP)
  Receive Date: 20191204
  Receipt Date: 20191226
  Transmission Date: 20200122
  Serious: Yes (Other)
  Sender: FDA-Public Use
  Company Number: JP-GLAXOSMITHKLINE-JP2019217632

PATIENT
  Age: 10 Year
  Sex: Female
  Weight: 59 kg

DRUGS (4)
  1. ASVERIN (TIPEPIDINE HIBENZATE) [Suspect]
     Active Substance: TIPEPIDINE HIBENZATE
     Indication: COUGH
     Dosage: 60 MG, 1D
     Route: 048
     Dates: start: 20191129
  2. POLARAMINE [Suspect]
     Active Substance: DEXCHLORPHENIRAMINE MALEATE
     Indication: RHINORRHOEA
     Dosage: 6 MG, 1D
     Route: 048
     Dates: start: 20191129
  3. RELENZA [Suspect]
     Active Substance: ZANAMIVIR
     Indication: INFLUENZA
     Dosage: 10 MG, BID
     Route: 055
     Dates: start: 20191129, end: 20191130
  4. CALONAL [Concomitant]
     Active Substance: ACETAMINOPHEN
     Dosage: UNK
     Dates: start: 20191129

REACTIONS (11)
  - Diarrhoea [Recovered/Resolved]
  - Pyrexia [Not Recovered/Not Resolved]
  - Stomatitis [Unknown]
  - Product contamination microbial [Unknown]
  - Abdominal pain [Recovered/Resolved]
  - Lip haemorrhage [Unknown]
  - Haematochezia [Recovered/Resolved]
  - Haemoptysis [Unknown]
  - Epistaxis [Unknown]
  - Headache [Unknown]
  - Therapy cessation [Unknown]

NARRATIVE: CASE EVENT DATE: 2019
